FAERS Safety Report 9652010 (Version 2)
Quarter: 2013Q4

REPORT INFORMATION
  Report Type: Spontaneous
  Country: DE (occurrence: DE)
  Receive Date: 20131029
  Receipt Date: 20131029
  Transmission Date: 20140711
  Serious: Yes (Other)
  Sender: FDA-Public Use
  Company Number: DE-ROCHE-1281023

PATIENT
  Age: 66 Year
  Sex: Female
  Weight: 77 kg

DRUGS (8)
  1. AVASTIN [Suspect]
     Indication: OVARIAN CANCER
     Dosage: FOR 15 MONTH
     Route: 042
     Dates: start: 20120713, end: 20130726
  2. CARBOPLATIN [Concomitant]
  3. PACLITAXEL [Concomitant]
  4. VENLAFAXINE [Concomitant]
     Indication: DEPRESSION
     Route: 048
  5. BELOC-ZOK [Concomitant]
     Indication: HYPERTENSION
     Route: 048
  6. LISIHEXAL [Concomitant]
     Indication: HYPERTENSION
     Dosage: 10/12.5 MG PER DAY
     Route: 048
  7. PANTOPRAZOL [Concomitant]
     Dosage: DAYS
     Route: 048
  8. SWEATOSAN N [Concomitant]
     Route: 048

REACTIONS (2)
  - Proteinuria [Not Recovered/Not Resolved]
  - Renal failure [Not Recovered/Not Resolved]
